FAERS Safety Report 15612993 (Version 1)
Quarter: 2018Q4

REPORT INFORMATION
  Report Type: Report from Study
  Country: US (occurrence: US)
  Receive Date: 20181113
  Receipt Date: 20181113
  Transmission Date: 20190205
  Serious: No
  Sender: FDA-Public Use
  Company Number: US-ALEXION PHARMACEUTICALS INC.-A201814761

PATIENT
  Age: 28 Year
  Sex: Female

DRUGS (2)
  1. SOLIRIS [Suspect]
     Active Substance: ECULIZUMAB
     Indication: ATYPICAL HAEMOLYTIC URAEMIC SYNDROME
     Dosage: UNK
     Route: 065
  2. SOLIRIS [Suspect]
     Active Substance: ECULIZUMAB
     Dosage: UNK
     Route: 065

REACTIONS (7)
  - Blood pressure inadequately controlled [Unknown]
  - Mean cell haemoglobin concentration decreased [Unknown]
  - Blood creatinine increased [Unknown]
  - Serum ferritin decreased [Unknown]
  - Lymphocyte count decreased [Unknown]
  - Menorrhagia [Unknown]
  - Iron deficiency anaemia [Unknown]

NARRATIVE: CASE EVENT DATE: 20181005
